FAERS Safety Report 5403613-3 (Version None)
Quarter: 2007Q3

REPORT INFORMATION
  Report Type: 
  Country: None (occurrence: None)
  Receive Date: 20070802
  Receipt Date: 20070726
  Transmission Date: 20080115
  Serious: Yes (Other)
  Sender: FDA-Public Use
  Company Number: PHBS2007CN09718

PATIENT
  Sex: Female

DRUGS (3)
  1. ZELNORM [Suspect]
     Indication: CONSTIPATION
     Route: 048
     Dates: start: 20050101, end: 20070501
  2. CISAPRIDE [Suspect]
     Route: 065
  3. DOMPERIDONE [Concomitant]

REACTIONS (4)
  - CARDIAC DISCOMFORT [None]
  - CARDIAC MURMUR [None]
  - MUSCULAR WEAKNESS [None]
  - PALPITATIONS [None]
